FAERS Safety Report 9570678 (Version 1)
Quarter: 2013Q4

REPORT INFORMATION
  Report Type: Spontaneous
  Country: US (occurrence: US)
  Receive Date: 20131001
  Receipt Date: 20131001
  Transmission Date: 20140711
  Serious: No
  Sender: FDA-Public Use
  Company Number: US-009507513-1309USA011739

PATIENT
  Age: 20 Year
  Sex: Male

DRUGS (2)
  1. ISENTRESS [Suspect]
     Indication: HIV INFECTION
     Dosage: 400 MG, BID
     Route: 048
  2. TRUVADA [Concomitant]

REACTIONS (2)
  - Weight decreased [Recovered/Resolved]
  - Diarrhoea [Recovered/Resolved]
